FAERS Safety Report 25133505 (Version 1)
Quarter: 2025Q1

REPORT INFORMATION
  Report Type: Spontaneous
  Country: DK (occurrence: DK)
  Receive Date: 20250328
  Receipt Date: 20250328
  Transmission Date: 20250409
  Serious: Yes (Hospitalization)
  Sender: SANDOZ
  Company Number: DK-BAXTER-2023BAX032708

PATIENT
  Age: 70 Year
  Sex: Female
  Weight: 81.3 kg

DRUGS (88)
  1. CYCLOPHOSPHAMIDE [Suspect]
     Active Substance: CYCLOPHOSPHAMIDE
     Indication: Diffuse large B-cell lymphoma
     Dosage: 1500 MG, EVERY 3 WEEKS, ONGOING
     Route: 042
     Dates: start: 20230904, end: 20230904
  2. DOXORUBICIN [Suspect]
     Active Substance: DOXORUBICIN
     Indication: Lymph node pain
     Route: 042
     Dates: start: 20230904
  3. DOXORUBICIN [Suspect]
     Active Substance: DOXORUBICIN
     Indication: Diffuse large B-cell lymphoma stage IV
     Route: 042
     Dates: start: 20230927
  4. DOXORUBICIN [Suspect]
     Active Substance: DOXORUBICIN
     Indication: Diffuse large B-cell lymphoma stage IV
  5. EPCORITAMAB [Suspect]
     Active Substance: EPCORITAMAB
     Indication: Diffuse large B-cell lymphoma
     Route: 058
     Dates: start: 20230904, end: 20230904
  6. EPCORITAMAB [Suspect]
     Active Substance: EPCORITAMAB
     Route: 058
     Dates: start: 20230927, end: 20230927
  7. EPCORITAMAB [Suspect]
     Active Substance: EPCORITAMAB
     Route: 058
     Dates: start: 20230918, end: 20230918
  8. PREDNISONE [Suspect]
     Active Substance: PREDNISONE
     Dosage: 100 MG, QD (21 DAYS INTAKE, 7 DAYS PAUSE)
     Route: 048
     Dates: start: 20230927
  9. PREDNISONE [Suspect]
     Active Substance: PREDNISONE
     Indication: Diffuse large B-cell lymphoma
     Dosage: 100 MG, QD 100 MG C1-6, DAY 1-5, EVERY 1 DAY
     Route: 048
     Dates: start: 20230905, end: 20230906
  10. RITUXIMAB [Suspect]
     Active Substance: RITUXIMAB
     Indication: Diffuse large B-cell lymphoma
     Dosage: 44.95 MG, Q3W, 44.95 MG, EVERY 3 WEEKS, ONGOING
     Route: 042
     Dates: start: 20230905, end: 20230905
  11. RITUXIMAB [Suspect]
     Active Substance: RITUXIMAB
     Dosage: 44.95 MG, EVERY 3 WEEKS
     Route: 042
     Dates: start: 20230927
  12. RITUXIMAB [Suspect]
     Active Substance: RITUXIMAB
     Route: 042
     Dates: start: 20230905
  13. VINCRISTINE [Suspect]
     Active Substance: VINCRISTINE
     Indication: Diffuse large B-cell lymphoma
     Dosage: 2 MG, Q3W
     Route: 042
     Dates: start: 20230904, end: 20230904
  14. VINCRISTINE [Suspect]
     Active Substance: VINCRISTINE
     Dosage: 2 MG, EVERY 3 WEEKS, ONGOING
     Route: 042
     Dates: start: 20230904
  15. VINCRISTINE [Suspect]
     Active Substance: VINCRISTINE
     Route: 042
     Dates: start: 20230927
  16. ACETAMINOPHEN [Concomitant]
     Active Substance: ACETAMINOPHEN
     Indication: Chemotherapy side effect prophylaxis
     Route: 065
     Dates: start: 20230918, end: 20230918
  17. ALLOPURINOL [Concomitant]
     Active Substance: ALLOPURINOL
     Indication: Prophylaxis
     Dosage: 300 MG, QD
     Route: 065
     Dates: start: 20230905
  18. AMOXICILLIN\CLAVULANIC ACID [Concomitant]
     Active Substance: AMOXICILLIN\CLAVULANIC ACID
     Indication: Infection prophylaxis
     Route: 065
     Dates: start: 20230909, end: 20230914
  19. AMOXICILLIN\CLAVULANIC ACID [Concomitant]
     Active Substance: AMOXICILLIN\CLAVULANIC ACID
     Route: 065
     Dates: start: 20230909, end: 20230914
  20. ANAKINRA [Concomitant]
     Active Substance: ANAKINRA
     Indication: Cytokine release syndrome
     Route: 065
     Dates: start: 20230905, end: 20230905
  21. APIXABAN [Concomitant]
     Active Substance: APIXABAN
     Indication: Thrombosis prophylaxis
     Dosage: 5 MG, 2/DAYS
     Route: 065
     Dates: start: 20160803, end: 20230915
  22. APREPITANT [Concomitant]
     Active Substance: APREPITANT
     Indication: Nausea
     Route: 065
     Dates: start: 20230925, end: 20230927
  23. APREPITANT [Concomitant]
     Active Substance: APREPITANT
     Indication: Product used for unknown indication
     Route: 065
  24. Betolvex [Concomitant]
     Dosage: 2 MG, QD
     Route: 065
     Dates: start: 20230322
  25. Betolvex [Concomitant]
     Indication: Vitamin supplementation
     Dosage: 2 MG, EVERY 1 DAYS
     Route: 065
     Dates: start: 20230904
  26. CETIRIZINE HYDROCHLORIDE [Concomitant]
     Active Substance: CETIRIZINE HYDROCHLORIDE
     Indication: Chemotherapy side effect prophylaxis
     Route: 065
     Dates: start: 20230918, end: 20230918
  27. CLEMASTINE [Concomitant]
     Active Substance: CLEMASTINE
     Indication: Chemotherapy side effect prophylaxis
     Route: 065
     Dates: start: 20230904, end: 20230904
  28. MORPHINE SULFATE [Concomitant]
     Active Substance: MORPHINE SULFATE
     Dosage: 10 MG, 2/DAYS
     Route: 065
     Dates: start: 20230913, end: 20230914
  29. MORPHINE SULFATE [Concomitant]
     Active Substance: MORPHINE SULFATE
     Dosage: 20 MG, EVERY 12 HOURS
     Route: 065
     Dates: start: 20230903, end: 20230913
  30. MORPHINE SULFATE [Concomitant]
     Active Substance: MORPHINE SULFATE
     Indication: Lymph node pain
     Dosage: 5 MG, 2/DAYS
     Route: 065
     Dates: start: 20230914, end: 20230917
  31. CYANOCOBALAMIN [Concomitant]
     Active Substance: CYANOCOBALAMIN
     Dosage: 1 MG, EVERY 1 DAYS
     Route: 065
     Dates: start: 20220322
  32. CYANOCOBALAMIN [Concomitant]
     Active Substance: CYANOCOBALAMIN
     Indication: Vitamin supplementation
     Dosage: 1 MG, 2/DAYS
     Route: 065
     Dates: start: 20220322
  33. DEXAMETHASONE [Concomitant]
     Active Substance: DEXAMETHASONE
     Indication: Neoplasm malignant
     Dosage: 10 MG, EVERY 12 HOURS
     Route: 065
     Dates: start: 20230905, end: 20230911
  34. DEXAMETHASONE [Concomitant]
     Active Substance: DEXAMETHASONE
     Indication: Prophylaxis
     Dosage: 10 MG, EVERY 24 HOURS
     Route: 065
     Dates: start: 20230912, end: 20230915
  35. DEXAMETHASONE [Concomitant]
     Active Substance: DEXAMETHASONE
     Dosage: 16 MG, EVERY 24 HOURS
     Route: 065
     Dates: start: 20230918, end: 20230921
  36. DEXAMETHASONE [Concomitant]
     Active Substance: DEXAMETHASONE
     Dosage: 4 MG, EVERY 24 HOURS
     Route: 065
     Dates: start: 20230916, end: 20230917
  37. DIGOXIN [Concomitant]
     Active Substance: DIGOXIN
     Indication: Atrial fibrillation
     Dosage: 250 UG, EVERY 24 HOURS
     Route: 065
     Dates: start: 20230917
  38. DIGOXIN [Concomitant]
     Active Substance: DIGOXIN
     Dosage: 250 UG, EVERY 24 HOURS
     Route: 065
     Dates: start: 20230904
  39. FLUOCORTOLONE PIVALATE\LIDOCAINE HYDROCHLORIDE [Concomitant]
     Active Substance: FLUOCORTOLONE PIVALATE\LIDOCAINE HYDROCHLORIDE
     Indication: Haemorrhoids
     Route: 065
     Dates: start: 20230912
  40. FLUOCORTOLONE PIVALATE\LIDOCAINE HYDROCHLORIDE [Concomitant]
     Active Substance: FLUOCORTOLONE PIVALATE\LIDOCAINE HYDROCHLORIDE
     Route: 065
     Dates: start: 20230912, end: 20230914
  41. DOMPERIDONE [Concomitant]
     Active Substance: DOMPERIDONE
     Indication: Prophylaxis of nausea and vomiting
     Route: 065
     Dates: start: 20230904
  42. DOMPERIDONE [Concomitant]
     Active Substance: DOMPERIDONE
     Indication: Vomiting
     Route: 065
     Dates: start: 20230915
  43. DOMPERIDONE [Concomitant]
     Active Substance: DOMPERIDONE
     Indication: Nausea
  44. DOMPERIDONE [Concomitant]
     Active Substance: DOMPERIDONE
     Indication: Prophylaxis of nausea and vomiting
  45. FLUCONAZOLE [Concomitant]
     Active Substance: FLUCONAZOLE
     Indication: Candida infection
     Dosage: 200 MG, EVERY 1 DAYS
     Route: 065
     Dates: start: 20230926
  46. FRAGMIN [Concomitant]
     Active Substance: DALTEPARIN SODIUM
     Indication: Thrombosis prophylaxis
     Dosage: 1500 IU, QD
     Route: 065
     Dates: start: 20230919
  47. FRAGMIN [Concomitant]
     Active Substance: DALTEPARIN SODIUM
     Dosage: 15000 IU, EVERY 24 HOURS
     Route: 065
     Dates: start: 20230915
  48. Furix [Concomitant]
     Indication: Prophylaxis
     Route: 065
     Dates: start: 20230908, end: 20230914
  49. POLYETHYLENE GLYCOL 3350\POTASSIUM CHLORIDE\SODIUM BICARBONATE\SODIUM [Concomitant]
     Active Substance: POLYETHYLENE GLYCOL 3350\POTASSIUM CHLORIDE\SODIUM BICARBONATE\SODIUM CHLORIDE
     Indication: Constipation
     Route: 065
     Dates: start: 20230913
  50. GAVISCON [Concomitant]
     Active Substance: ALUMINUM HYDROXIDE\MAGNESIUM CARBONATE
     Indication: Gastrooesophageal reflux disease
     Route: 065
     Dates: start: 20230917, end: 20230919
  51. ALBUTEROL SULFATE\IPRATROPIUM BROMIDE [Concomitant]
     Active Substance: ALBUTEROL SULFATE\IPRATROPIUM BROMIDE
     Indication: Prophylaxis against bronchospasm
     Route: 065
     Dates: start: 20230906, end: 20230910
  52. Isotonic Glucose [Concomitant]
     Indication: Product used for unknown indication
     Route: 065
     Dates: start: 20230926, end: 20230926
  53. Isotonic Glucose [Concomitant]
     Indication: Dehydration
     Route: 065
  54. POTASSIUM CHLORIDE [Concomitant]
     Active Substance: POTASSIUM CHLORIDE
     Indication: Mineral supplementation
     Dosage: 750 MG, EVERY 1 DAYS
     Route: 065
     Dates: start: 20230908, end: 20230914
  55. GRAMICIDIN\NEOMYCIN SULFATE\NYSTATIN\TRIAMCINOLONE ACETONIDE [Concomitant]
     Active Substance: GRAMICIDIN\NEOMYCIN SULFATE\NYSTATIN\TRIAMCINOLONE ACETONIDE
     Indication: Candida infection
     Route: 065
     Dates: start: 20230926
  56. LORAZEPAM [Concomitant]
     Active Substance: LORAZEPAM
     Indication: Nausea
     Route: 065
     Dates: start: 20230925
  57. POLYETHYLENE GLYCOLS [Concomitant]
     Active Substance: POLYETHYLENE GLYCOLS
     Indication: Constipation
     Dosage: 1 DF, QD
     Route: 065
     Dates: start: 20230913
  58. POLYETHYLENE GLYCOLS [Concomitant]
     Active Substance: POLYETHYLENE GLYCOLS
     Route: 065
     Dates: start: 20230913
  59. POLYETHYLENE GLYCOL 3350\POTASSIUM CHLORIDE\SODIUM BICARBONATE\SODIUM [Concomitant]
     Active Substance: POLYETHYLENE GLYCOL 3350\POTASSIUM CHLORIDE\SODIUM BICARBONATE\SODIUM CHLORIDE
     Indication: Vomiting
     Dosage: 1 DOSAGE FORM, EVERY 1 DAYS
     Route: 065
     Dates: start: 20230913
  60. POLYETHYLENE GLYCOL 3350\POTASSIUM CHLORIDE\SODIUM BICARBONATE\SODIUM [Concomitant]
     Active Substance: POLYETHYLENE GLYCOL 3350\POTASSIUM CHLORIDE\SODIUM BICARBONATE\SODIUM CHLORIDE
     Indication: Constipation
     Dosage: 1 SACHET, EVERY 24 HOURS
     Route: 065
     Dates: start: 20230913
  61. POLYETHYLENE GLYCOL 3350\POTASSIUM CHLORIDE\SODIUM BICARBONATE\SODIUM [Concomitant]
     Active Substance: POLYETHYLENE GLYCOL 3350\POTASSIUM CHLORIDE\SODIUM BICARBONATE\SODIUM CHLORIDE
     Indication: Constipation
  62. POLYETHYLENE GLYCOL 3350\POTASSIUM CHLORIDE\SODIUM BICARBONATE\SODIUM [Concomitant]
     Active Substance: POLYETHYLENE GLYCOL 3350\POTASSIUM CHLORIDE\SODIUM BICARBONATE\SODIUM CHLORIDE
     Indication: Constipation
  63. Magnesiumhydroxide [Concomitant]
     Indication: Constipation prophylaxis
     Route: 065
     Dates: start: 20230903
  64. METOPROLOL SUCCINATE [Concomitant]
     Active Substance: METOPROLOL SUCCINATE
     Indication: Atrial fibrillation
     Dosage: 25 MG, EVERY 24 HOURS
     Route: 065
     Dates: start: 20230911
  65. METOPROLOL SUCCINATE [Concomitant]
     Active Substance: METOPROLOL SUCCINATE
     Indication: Atrial fibrillation
     Dosage: 25 MG, QD
     Route: 065
     Dates: start: 20230913
  66. MORPHINE [Concomitant]
     Active Substance: MORPHINE
     Indication: Lymph node pain
     Route: 065
     Dates: start: 20230904, end: 20230919
  67. NOVORAPID [Concomitant]
     Active Substance: INSULIN ASPART
     Indication: Prophylaxis
     Route: 065
     Dates: start: 20230905
  68. Nystatina [Concomitant]
     Indication: Candida infection
     Route: 065
     Dates: start: 20230926
  69. Nystatina [Concomitant]
     Route: 065
     Dates: start: 20230908, end: 20230922
  70. ONDANSETRON [Concomitant]
     Active Substance: ONDANSETRON
     Indication: Prophylaxis of nausea and vomiting
     Dosage: 8 MG, 2/DAYS
     Route: 065
     Dates: start: 20230919
  71. ONDANSETRON [Concomitant]
     Active Substance: ONDANSETRON
     Indication: Nausea
  72. PANTOPRAZOLE SODIUM [Concomitant]
     Active Substance: PANTOPRAZOLE SODIUM
     Indication: Prophylaxis
     Dosage: 40 MG, EVERY 1 DAYS
     Route: 065
     Dates: start: 20230831
  73. PANTOPRAZOLE SODIUM [Concomitant]
     Active Substance: PANTOPRAZOLE SODIUM
     Indication: Antacid therapy
  74. PANTOPRAZOLE SODIUM [Concomitant]
     Active Substance: PANTOPRAZOLE SODIUM
     Indication: Antacid therapy
  75. PANTOPRAZOLE SODIUM [Concomitant]
     Active Substance: PANTOPRAZOLE SODIUM
     Indication: Antacid therapy
  76. ACETAMINOPHEN [Concomitant]
     Active Substance: ACETAMINOPHEN
     Indication: Premedication
     Dosage: 1000 MG, QD
     Route: 065
     Dates: start: 20230918, end: 20230918
  77. PEGFILGRASTIM [Concomitant]
     Active Substance: PEGFILGRASTIM
     Indication: Prophylaxis
     Route: 065
     Dates: start: 20230906, end: 20230906
  78. PIPERACILLIN SODIUM\TAZOBACTAM SODIUM [Concomitant]
     Active Substance: PIPERACILLIN SODIUM\TAZOBACTAM SODIUM
     Indication: Infection prophylaxis
     Dosage: 4 G, EVERY 8 HOURS
     Route: 065
     Dates: start: 20230906, end: 20230909
  79. PREDNISOLONE [Concomitant]
     Active Substance: PREDNISOLONE
     Indication: Diffuse large B-cell lymphoma
     Dosage: 150 MG, EVERY 24 HOURS
     Route: 065
     Dates: start: 20230903, end: 20230904
  80. PROCTOSEDYL [Concomitant]
     Active Substance: DIBUCAINE HYDROCHLORIDE\HYDROCORTISONE
     Indication: Haemorrhoids
     Dosage: 1 APPLICATION, EVERY 8 HOURS
     Route: 065
     Dates: start: 20230914
  81. RAMIPRIL [Concomitant]
     Active Substance: RAMIPRIL
     Indication: Prophylaxis
     Dosage: 5 MG, 2 DAYS
     Route: 065
     Dates: start: 20160913
  82. RAMIPRIL [Concomitant]
     Active Substance: RAMIPRIL
     Indication: Atrial fibrillation
  83. Ramipril Unp [Concomitant]
     Indication: Atrial fibrillation
     Dosage: 5 MG, BID
     Route: 065
     Dates: start: 20230916
  84. Temesta [Concomitant]
     Indication: Atrial fibrillation
     Route: 065
     Dates: start: 20230925
  85. Temesta [Concomitant]
     Indication: Nausea
  86. Unikalk forte [Concomitant]
     Indication: Mineral supplementation
     Dosage: 400 MG, EVERY 1 DAYS
     Route: 065
     Dates: start: 20230904
  87. ZOPICLONE [Concomitant]
     Active Substance: ZOPICLONE
     Indication: Insomnia
     Route: 065
     Dates: start: 20230906, end: 20230919
  88. ZOPICLONE [Concomitant]
     Active Substance: ZOPICLONE
     Indication: Insomnia
     Dosage: 7.5 MG, EVERY 1 DAYS
     Route: 065
     Dates: start: 20230906, end: 20230919

REACTIONS (2)
  - Dehydration [Recovered/Resolved]
  - Dehydration [Not Recovered/Not Resolved]

NARRATIVE: CASE EVENT DATE: 20230923
